FAERS Safety Report 5280179-2 (Version None)
Quarter: 2007Q1

REPORT INFORMATION
  Report Type: 
  Country: None (occurrence: None)
  Receive Date: 20070326
  Receipt Date: 20070326
  Transmission Date: 20070707
  Serious: Yes (Other)
  Sender: FDA-Public Use
  Company Number: None

PATIENT
  Age: 54 Year
  Sex: Female
  Weight: 108.8633 kg

DRUGS (1)
  1. BISOPRODOL FUMARATE [Suspect]
     Indication: HYPERTENSION
     Dosage: 1TABLET DAILY PO
     Route: 048
     Dates: start: 20041101, end: 20070318

REACTIONS (7)
  - ABNORMAL SLEEP-RELATED EVENT [None]
  - FATIGUE [None]
  - NARCOLEPSY [None]
  - PHARMACEUTICAL PRODUCT COMPLAINT [None]
  - SLEEP APNOEA SYNDROME [None]
  - SOMNOLENCE [None]
  - THERAPEUTIC RESPONSE UNEXPECTED WITH DRUG SUBSTITUTION [None]
